FAERS Safety Report 9907963 (Version 1)
Quarter: 2014Q1

REPORT INFORMATION
  Report Type: Spontaneous
  Country: US (occurrence: US)
  Receive Date: 20140219
  Receipt Date: 20140219
  Transmission Date: 20141002
  Serious: No
  Sender: FDA-Public Use
  Company Number: US-009507513-1402USA006112

PATIENT
  Age: 55 Year
  Sex: Female

DRUGS (6)
  1. PEGINTRON [Suspect]
     Indication: HEPATITIS C
     Dosage: 0.5 ML (120 MICROGRAM), ONCE A WEEK, REDIPEN
     Route: 058
     Dates: start: 20140204
  2. REBETOL [Suspect]
     Indication: HEPATITIS C
     Dosage: 800 MG, BID (TWICE DAILY)
     Route: 048
     Dates: start: 20140204
  3. SOVALDI [Concomitant]
     Dosage: 400 MG/ DAILY
  4. PROPRANOLOL HYDROCHLORIDE [Concomitant]
     Dosage: 120 MG, UNK
  5. NIFEDIPINE [Concomitant]
     Dosage: 120 MG, UNK
     Route: 048
  6. COZAAR [Concomitant]
     Dosage: 50 MG, UNK
     Route: 048

REACTIONS (9)
  - Gait disturbance [Unknown]
  - Hyperhidrosis [Unknown]
  - Blood pressure decreased [Unknown]
  - Asthenia [Unknown]
  - Diarrhoea [Unknown]
  - Decreased appetite [Unknown]
  - Chills [Unknown]
  - Nausea [Unknown]
  - Fatigue [Unknown]
